FAERS Safety Report 10268773 (Version 2)
Quarter: 2014Q3

REPORT INFORMATION
  Report Type: Report from Study
  Country: BR (occurrence: BR)
  Receive Date: 20140630
  Receipt Date: 20140728
  Transmission Date: 20150326
  Serious: Yes (Death)
  Sender: FDA-Public Use
  Company Number: PHHY2014BR080326

PATIENT
  Sex: Female
  Weight: 60 kg

DRUGS (2)
  1. EXELON PATCH [Suspect]
     Active Substance: RIVASTIGMINE
     Indication: MEMORY IMPAIRMENT
     Dosage: 18 MG (10 CM2), DAILY
     Route: 062
     Dates: start: 201403
  2. DRUG THERAPY NOS [Concomitant]
     Active Substance: UNSPECIFIED INGREDIENT
     Indication: BLOOD CHOLESTEROL INCREASED
     Dosage: 1 DF, DAILY

REACTIONS (1)
  - Cardiopulmonary failure [Fatal]
